FAERS Safety Report 9649681 (Version 2)
Quarter: 2013Q4

REPORT INFORMATION
  Report Type: Spontaneous
  Country: US (occurrence: US)
  Receive Date: 20131028
  Receipt Date: 20131028
  Transmission Date: 20140711
  Serious: Yes (Hospitalization)
  Sender: FDA-Public Use
  Company Number: US-TAKEDA-TPA2013A05570

PATIENT
  Age: 56 Year
  Sex: Female

DRUGS (3)
  1. PREVACID 24 HR [Suspect]
     Indication: HIATUS HERNIA
     Route: 048
     Dates: start: 2009, end: 20130604
  2. PREVACID 24 HR [Suspect]
     Indication: REFLUX GASTRITIS
  3. PREVACID [Concomitant]

REACTIONS (7)
  - Clostridium difficile infection [Recovering/Resolving]
  - Nausea [Not Recovered/Not Resolved]
  - Diarrhoea [Recovering/Resolving]
  - Abdominal pain upper [Recovered/Resolved]
  - Decreased appetite [Recovering/Resolving]
  - Abdominal discomfort [Not Recovered/Not Resolved]
  - Impaired gastric emptying [Unknown]
